FAERS Safety Report 8839869 (Version 3)
Quarter: 2012Q4

REPORT INFORMATION
  Report Type: Report from Study
  Country: US (occurrence: US)
  Receive Date: 20121015
  Receipt Date: 20121126
  Transmission Date: 20130627
  Serious: Yes (Hospitalization)
  Sender: FDA-Public Use
  Company Number: US-EISAI INC-E7389-03093-CLI-US

PATIENT
  Age: 33 Year
  Sex: Female
  Weight: 93 kg

DRUGS (5)
  1. HALAVEN [Suspect]
     Indication: BREAST CANCER
     Route: 041
     Dates: start: 20120126, end: 20120809
  2. RAMUCIRUMAB [Suspect]
     Indication: BREAST CANCER
     Route: 041
     Dates: start: 20120126, end: 20120809
  3. GABAPENTIN [Concomitant]
     Route: 065
     Dates: start: 20111019
  4. CETIRIZINE HYDROCHLORIDE [Concomitant]
     Route: 065
     Dates: start: 201101
  5. PANTOPRAZOLE SODIUM [Concomitant]
     Route: 065
     Dates: start: 20110707

REACTIONS (1)
  - Wound dehiscence [Recovered/Resolved]
